FAERS Safety Report 8967279 (Version 1)
Quarter: 2012Q4

REPORT INFORMATION
  Report Type: 
  Country: US (occurrence: US)
  Receive Date: 20121214
  Receipt Date: 20121214
  Transmission Date: 20130627
  Serious: No
  Sender: FDA-Public Use
  Company Number: US-GLAXOSMITHKLINE-A0979669A

PATIENT
  Age: 54 Year
  Sex: Female

DRUGS (3)
  1. FLONASE [Suspect]
     Indication: RHINITIS ALLERGIC
     Dosage: 2SPR Variable dose
     Route: 045
  2. SALINE SPRAY [Concomitant]
  3. OXYGEN [Concomitant]

REACTIONS (3)
  - Drug ineffective [Unknown]
  - Epistaxis [Unknown]
  - Headache [Unknown]
